FAERS Safety Report 9919786 (Version 2)
Quarter: 2014Q2

REPORT INFORMATION
  Report Type: Spontaneous
  Country: FR (occurrence: FR)
  Receive Date: 20140224
  Receipt Date: 20140630
  Transmission Date: 20141212
  Serious: Yes (Other)
  Sender: FDA-Public Use
  Company Number: FR-GLAXOSMITHKLINE-B0969895A

PATIENT
  Sex: Female

DRUGS (1)
  1. SERETIDE [Suspect]
     Indication: ASTHMA
     Route: 055

REACTIONS (5)
  - Asthmatic crisis [Recovered/Resolved]
  - Panic disorder [Recovered/Resolved]
  - Drug ineffective [Unknown]
  - Device failure [Unknown]
  - Product quality issue [Unknown]
